FAERS Safety Report 4705600-7 (Version None)
Quarter: 2005Q3

REPORT INFORMATION
  Report Type: 
  Country: None (occurrence: None)
  Receive Date: 20050701
  Receipt Date: 20050628
  Transmission Date: 20060218
  Serious: Yes (Hospitalization)
  Sender: FDA-Public Use
  Company Number: CA-BOEHRINGER INGELHEIM PHARMACEUTICALS, INC.-2005-CN-00766CN

PATIENT
  Age: 85 Year
  Sex: Male

DRUGS (9)
  1. ATROVENT [Suspect]
     Indication: CHRONIC OBSTRUCTIVE PULMONARY DISEASE
  2. UNIPHYL [Concomitant]
  3. FLOVENT [Concomitant]
  4. VENTOLIN [Concomitant]
  5. ASPIRIN [Concomitant]
  6. LASIX [Concomitant]
  7. PROSCAR [Concomitant]
  8. COREG [Concomitant]
  9. DIGOXIN [Concomitant]

REACTIONS (3)
  - DIARRHOEA [None]
  - DYSGEUSIA [None]
  - MYOCARDIAL INFARCTION [None]
